FAERS Safety Report 6598490-1 (Version None)
Quarter: 2010Q1

REPORT INFORMATION
  Report Type: 
  Country: None (occurrence: None)
  Receive Date: 20100224
  Receipt Date: 20040119
  Transmission Date: 20100710
  Serious: No
  Sender: FDA-Public Use
  Company Number: US-ALLERGAN-200500887

PATIENT
  Age: 56 Year
  Sex: Female
  Weight: 52.727 kg

DRUGS (1)
  1. BOTOX COSMETIC [Suspect]
     Indication: SKIN WRINKLING
     Dosage: 35UNITS, PRN
     Route: 030
     Dates: start: 20041230

REACTIONS (4)
  - ASTHENOPIA [None]
  - DIPLOPIA [None]
  - VISION BLURRED [None]
  - WRONG TECHNIQUE IN DRUG USAGE PROCESS [None]
